FAERS Safety Report 7055907-6 (Version None)
Quarter: 2010Q4

REPORT INFORMATION
  Report Type: 
  Country: None (occurrence: None)
  Receive Date: 20101021
  Receipt Date: 20101013
  Transmission Date: 20110411
  Serious: Yes (Congenital Anomaly)
  Sender: FDA-Public Use
  Company Number: A0681065A

PATIENT
  Sex: Male

DRUGS (6)
  1. PAXIL [Suspect]
     Indication: ANXIETY
     Dosage: 20MG TWICE PER DAY
     Dates: start: 19990101, end: 20020101
  2. PAXIL CR [Suspect]
     Indication: ANXIETY
     Dosage: 25MG THREE TIMES PER DAY
     Dates: start: 20020101
  3. PAROXETINE HCL [Suspect]
     Indication: ANXIETY
     Dates: start: 19990101
  4. PRENATAL VITAMINS [Concomitant]
     Indication: PREGNANCY
     Dates: start: 20020101, end: 20030101
  5. INSULIN [Concomitant]
  6. SEROQUEL [Concomitant]

REACTIONS (7)
  - AORTIC VALVE DISEASE [None]
  - ASTHMA [None]
  - CONGENITAL AORTIC VALVE INCOMPETENCE [None]
  - DRUG EXPOSURE DURING PREGNANCY [None]
  - GASTROOESOPHAGEAL REFLUX DISEASE [None]
  - LEFT VENTRICULAR HYPERTROPHY [None]
  - SPEECH DISORDER DEVELOPMENTAL [None]
